FAERS Safety Report 24706404 (Version 2)
Quarter: 2025Q2

REPORT INFORMATION
  Report Type: Spontaneous
  Country: GB (occurrence: GB)
  Receive Date: 20241206
  Receipt Date: 20250521
  Transmission Date: 20250716
  Serious: Yes (Hospitalization)
  Sender: MYLAN
  Company Number: GB-MYLANLABS-2024M1104665

PATIENT
  Sex: Female

DRUGS (2)
  1. CLOZAPINE [Suspect]
     Active Substance: CLOZAPINE
     Indication: Schizophrenia
     Dates: start: 20241105, end: 20241118
  2. CLOZAPINE [Suspect]
     Active Substance: CLOZAPINE
     Dates: start: 20241128, end: 20250506

REACTIONS (5)
  - Malaise [Unknown]
  - Lower respiratory tract infection [Unknown]
  - White blood cell count increased [Unknown]
  - Neutrophilia [Unknown]
  - Therapy interrupted [Recovered/Resolved]

NARRATIVE: CASE EVENT DATE: 20241118
